FAERS Safety Report 16032175 (Version 1)
Quarter: 2019Q1

REPORT INFORMATION
  Report Type: Spontaneous
  Country: US (occurrence: US)
  Receive Date: 20190304
  Receipt Date: 20190304
  Transmission Date: 20190418
  Serious: No
  Sender: FDA-Public Use
  Company Number: US-NEXGEN PHARMA, INC.-2063531

PATIENT
  Sex: Female

DRUGS (2)
  1. HYOSCYAMINE. [Concomitant]
     Active Substance: HYOSCYAMINE
     Route: 048
  2. CHENODAL [Suspect]
     Active Substance: CHENODIOL
     Indication: MUCOLIPIDOSIS
     Route: 048
     Dates: start: 20150605

REACTIONS (1)
  - Liver function test increased [None]
